FAERS Safety Report 7415828-3 (Version None)
Quarter: 2011Q2

REPORT INFORMATION
  Report Type: 
  Country: None (occurrence: None)
  Receive Date: 20110414
  Receipt Date: 20110323
  Transmission Date: 20111010
  Serious: Yes (Other)
  Sender: FDA-Public Use
  Company Number: US-BAYER-201038158NA

PATIENT
  Age: 49 Year
  Sex: Female

DRUGS (15)
  1. METFORMIN [Concomitant]
     Indication: GLUCOSE TOLERANCE IMPAIRED
     Route: 048
  2. SPIRONOLACTONE [Concomitant]
     Route: 048
  3. CYMBALTA [Concomitant]
     Route: 048
  4. ZYRTEC [Concomitant]
     Route: 048
  5. ACIPHEX [Concomitant]
     Route: 048
  6. PROPRANOLOL [Concomitant]
     Indication: HYPERTENSION
     Route: 048
  7. IMITREX [Concomitant]
     Route: 048
  8. YASMIN [Suspect]
     Indication: PRODUCT USED FOR UNKNOWN INDICATION
     Route: 048
     Dates: start: 20060801, end: 20090929
  9. DEXAMETHASONE [Concomitant]
     Dosage: 0.5 MG, UNK
     Route: 048
  10. SINGULAIR [Concomitant]
     Route: 048
  11. LORAZEPAM [Concomitant]
     Route: 048
  12. RELPAX [Concomitant]
     Route: 048
  13. ZOLOFT [Concomitant]
     Route: 048
  14. NASONEX [Concomitant]
     Route: 048
  15. ADVAIR HFA [Concomitant]
     Route: 048

REACTIONS (1)
  - DEEP VEIN THROMBOSIS [None]
